FAERS Safety Report 5042486-8 (Version None)
Quarter: 2006Q2

REPORT INFORMATION
  Report Type: 
  Country: None (occurrence: None)
  Receive Date: 20060627
  Receipt Date: 20060609
  Transmission Date: 20061013
  Serious: Yes (Death)
  Sender: FDA-Public Use
  Company Number: CA200606003008

PATIENT
  Age: 53 Year
  Sex: Male

DRUGS (2)
  1. FORTEO [Suspect]
     Indication: OSTEOPOROSIS
     Dosage: 20 UG, DAILY (1/D)
     Dates: start: 20060316, end: 20060101
  2. FORTEO [Concomitant]

REACTIONS (2)
  - CEREBROVASCULAR ACCIDENT [None]
  - FATIGUE [None]
